FAERS Safety Report 17879738 (Version 1)
Quarter: 2020Q2

REPORT INFORMATION
  Report Type: Spontaneous
  Country: PT (occurrence: PT)
  Receive Date: 20200610
  Receipt Date: 20200610
  Transmission Date: 20200714
  Serious: Yes (Life-Threatening, Hospitalization)
  Sender: FDA-Public Use
  Company Number: PT-ACCORD-184901

PATIENT
  Age: 82 Year
  Sex: Male

DRUGS (1)
  1. BICALUTAMIDE. [Suspect]
     Active Substance: BICALUTAMIDE
     Indication: PROSTATE CANCER
     Route: 048

REACTIONS (5)
  - Allergic reaction to excipient [Unknown]
  - Dyspnoea [Unknown]
  - Immune-mediated adverse reaction [Unknown]
  - Dermatitis allergic [Unknown]
  - Tracheobronchitis [Unknown]
